FAERS Safety Report 24710381 (Version 2)
Quarter: 2025Q1

REPORT INFORMATION
  Report Type: Report from Study
  Country: NL (occurrence: NL)
  Receive Date: 20241209
  Receipt Date: 20250312
  Transmission Date: 20250409
  Serious: Yes (Hospitalization)
  Sender: BIOVITRUM
  Company Number: NL-AstraZeneca-CH-00758356A

PATIENT
  Age: 9 Week
  Sex: Male
  Weight: 4.755 kg

DRUGS (2)
  1. SYNAGIS [Suspect]
     Active Substance: PALIVIZUMAB
     Indication: Cardiac disorder
     Route: 030
     Dates: start: 20241021
  2. ACETAMINOPHEN [Concomitant]
     Active Substance: ACETAMINOPHEN
     Indication: Product used for unknown indication
     Route: 065

REACTIONS (3)
  - Pyrexia [Recovered/Resolved]
  - Skin discolouration [Recovered/Resolved]
  - Inappropriate schedule of product administration [Recovered/Resolved]

NARRATIVE: CASE EVENT DATE: 20241122
